FAERS Safety Report 11488778 (Version 1)
Quarter: 2015Q3

REPORT INFORMATION
  Report Type: Spontaneous
  Country: US (occurrence: US)
  Receive Date: 20150910
  Receipt Date: 20150910
  Transmission Date: 20151125
  Serious: No
  Sender: FDA-Public Use
  Company Number: US-ROCHE-1464487

PATIENT
  Age: 57 Year
  Sex: Male

DRUGS (1)
  1. PEGASYS [Suspect]
     Active Substance: PEGINTERFERON ALFA-2A
     Indication: HEPATITIS C
     Dosage: STRENGTH: 80 MCG/0.5 ML
     Route: 065

REACTIONS (4)
  - Anaemia [Unknown]
  - Dry skin [Unknown]
  - Dizziness [Unknown]
  - Pruritus [Unknown]
